FAERS Safety Report 25330363 (Version 2)
Quarter: 2025Q2

REPORT INFORMATION
  Report Type: Report from Study
  Country: US (occurrence: US)
  Receive Date: 20250519
  Receipt Date: 20250625
  Transmission Date: 20250717
  Serious: Yes (Hospitalization, Other)
  Sender: SUNOVION
  Company Number: US-SMPA-2025SPA006111

PATIENT

DRUGS (22)
  1. ORGOVYX [Suspect]
     Active Substance: RELUGOLIX
     Indication: Prostate cancer
     Dosage: 360 MG, SINGLE
     Route: 048
     Dates: start: 20250404, end: 20250404
  2. ORGOVYX [Suspect]
     Active Substance: RELUGOLIX
     Dosage: 120 MG, QD
     Route: 048
     Dates: start: 20250405
  3. ALBUTEROL SULFATE [Concomitant]
     Active Substance: ALBUTEROL SULFATE
     Route: 065
  4. ALFUZOSIN HYDROCHLORIDE [Concomitant]
     Active Substance: ALFUZOSIN HYDROCHLORIDE
     Route: 065
  5. ASPIRIN [Concomitant]
     Active Substance: ASPIRIN
     Route: 065
  6. ELIQUIS [Concomitant]
     Active Substance: APIXABAN
     Route: 065
  7. ATORVASTATIN [Concomitant]
     Active Substance: ATORVASTATIN
     Route: 065
  8. FARXIGA [Concomitant]
     Active Substance: DAPAGLIFLOZIN PROPANEDIOL
     Route: 065
  9. DILTIAZEM HYDROCHLORIDE [Concomitant]
     Active Substance: DILTIAZEM HYDROCHLORIDE
     Route: 065
  10. FLUDROCORTISONE [Concomitant]
     Active Substance: FLUDROCORTISONE
     Route: 065
  11. DIGOXIN [Concomitant]
     Active Substance: DIGOXIN
     Route: 065
  12. FUROSEMIDE [Concomitant]
     Active Substance: FUROSEMIDE
     Route: 065
  13. DIABETIC TUSSIN EXPECTORANT [Concomitant]
     Active Substance: GUAIFENESIN
     Route: 065
  14. CHEST CONGESTION [Concomitant]
     Active Substance: GUAIFENESIN
     Route: 065
  15. METOPROLOL SUCCINATE [Concomitant]
     Active Substance: METOPROLOL SUCCINATE
     Route: 065
  16. OMEPRAZOLE [Concomitant]
     Active Substance: OMEPRAZOLE
     Route: 065
  17. PREDNISONE [Concomitant]
     Active Substance: PREDNISONE
     Route: 065
  18. MIDODRINE [Concomitant]
     Active Substance: MIDODRINE
     Route: 065
  19. SPIRONOLACTONE [Concomitant]
     Active Substance: SPIRONOLACTONE
     Route: 065
  20. TAMSULOSIN [Concomitant]
     Active Substance: TAMSULOSIN
     Route: 065
  21. BRILINTA [Concomitant]
     Active Substance: TICAGRELOR
     Route: 065
  22. Dextromethorphan Guaifenesin Phenylephrine hydrochloride [Concomitant]
     Route: 065

REACTIONS (2)
  - Stent placement [Recovered/Resolved]
  - Pneumonia [Recovered/Resolved]
